FAERS Safety Report 4681287-7 (Version None)
Quarter: 2005Q2

REPORT INFORMATION
  Report Type: 
  Country: None (occurrence: None)
  Receive Date: 20050602
  Receipt Date: 20050602
  Transmission Date: 20051028
  Serious: Yes (Life-Threatening, Hospitalization)
  Sender: FDA-Public Use
  Company Number: None

PATIENT
  Age: 40 Year
  Sex: Female
  Weight: 50.8029 kg

DRUGS (2)
  1. GABITRIL [Suspect]
     Indication: ANXIETY
     Dosage: 1  DAY   ORAL
     Route: 048
     Dates: start: 20030701, end: 20040810
  2. GABITRIL [Suspect]
     Indication: DEPRESSION
     Dosage: 1  DAY   ORAL
     Route: 048
     Dates: start: 20030701, end: 20040810

REACTIONS (7)
  - AMNESIA [None]
  - CONVULSION [None]
  - DISORIENTATION [None]
  - HYPOAESTHESIA [None]
  - LOSS OF CONSCIOUSNESS [None]
  - SPEECH DISORDER [None]
  - VISUAL DISTURBANCE [None]
